FAERS Safety Report 8896396 (Version 1)
Quarter: 2012Q4

REPORT INFORMATION
  Report Type: Spontaneous
  Country: US (occurrence: None)
  Receive Date: 20121031
  Receipt Date: 20121031
  Transmission Date: 20130627
  Serious: Yes (Other)
  Sender: FDA-Public Use
  Company Number: US-GDP-11411991

PATIENT
  Age: 61 Year
  Sex: Female

DRUGS (1)
  1. METROGEL [Suspect]
     Indication: ROSACEA
     Dosage: (1 DF PRN)
     Route: 061

REACTIONS (2)
  - Trigger finger [None]
  - Refusal of treatment by patient [None]
